FAERS Safety Report 5342291-9 (Version None)
Quarter: 2007Q2

REPORT INFORMATION
  Report Type: 
  Country: None (occurrence: None)
  Receive Date: 20070416
  Receipt Date: 20070309
  Transmission Date: 20071010
  Serious: No
  Sender: FDA-Public Use
  Company Number: 2007SP000866

PATIENT
  Age: 88 Year
  Sex: Male
  Weight: 64.8644 kg

DRUGS (9)
  1. LUNESTA [Suspect]
     Indication: INSOMNIA
     Dosage: SEE IMAGE
     Route: 048
     Dates: start: 20070101
  2. LUNESTA [Suspect]
     Indication: INSOMNIA
     Dosage: SEE IMAGE
     Route: 048
     Dates: start: 20070101
  3. LUNESTA [Suspect]
     Indication: INSOMNIA
     Dosage: SEE IMAGE
     Route: 048
     Dates: start: 20070308
  4. LABETALOL HCL [Concomitant]
  5. MICROZIDE [Concomitant]
  6. ACETYLSALICYLIC ACID SRT [Concomitant]
  7. LOVASTATIN [Concomitant]
  8. ZETIA [Concomitant]
  9. PROSCAR [Concomitant]

REACTIONS (2)
  - DRUG INEFFECTIVE [None]
  - INSOMNIA [None]
